FAERS Safety Report 6512759-8 (Version None)
Quarter: 2009Q4

REPORT INFORMATION
  Report Type: 
  Country: None (occurrence: None)
  Receive Date: 20091217
  Receipt Date: 20091117
  Transmission Date: 20100525
  Serious: Yes (Other)
  Sender: FDA-Public Use
  Company Number: AE-2009-306

PATIENT
  Age: 76 Year
  Sex: Female

DRUGS (3)
  1. ATENOLOL [Suspect]
     Indication: HYPERTENSION
     Dosage: 50MG, QD, ORAL
     Route: 048
  2. SPIRONOLACTONE [Suspect]
     Indication: HYPERTENSION
     Dosage: 25 MG, QD, ORAL
     Route: 048
  3. LOVASTATIN [Suspect]
     Indication: HYPERCHOLESTEROLAEMIA

REACTIONS (2)
  - DIARRHOEA [None]
  - HYPONATRAEMIA [None]
